FAERS Safety Report 6264736-2 (Version None)
Quarter: 2009Q3

REPORT INFORMATION
  Report Type: 
  Country: None (occurrence: None)
  Receive Date: 20090710
  Receipt Date: 20090708
  Transmission Date: 20100115
  Serious: Yes (Other)
  Sender: FDA-Public Use
  Company Number: US-BRISTOL-MYERS SQUIBB COMPANY-14694541

PATIENT
  Age: 73 Year
  Sex: Female
  Weight: 64 kg

DRUGS (2)
  1. TAXOL [Suspect]
     Indication: BREAST CANCER
     Dosage: INITIATED ON 28FEB08. TOTAL DOSE:18.4557 MG
     Route: 042
     Dates: start: 20080502, end: 20080502
  2. MYOCET [Interacting]
     Indication: BREAST CANCER
     Dosage: INITIATED ON 28FEB08. TOTAL DOSE:4.6143 MG
     Route: 042
     Dates: start: 20080502, end: 20080502

REACTIONS (2)
  - DRUG INTERACTION [None]
  - PALMAR-PLANTAR ERYTHRODYSAESTHESIA SYNDROME [None]
